FAERS Safety Report 9871115 (Version 1)
Quarter: 2014Q1

REPORT INFORMATION
  Report Type: Spontaneous
  Country: US (occurrence: US)
  Receive Date: 20140205
  Receipt Date: 20140205
  Transmission Date: 20141002
  Serious: No
  Sender: FDA-Public Use
  Company Number: US-GILEAD-2013-0078232

PATIENT
  Age: 52 Year
  Sex: Male

DRUGS (4)
  1. TRUVADA [Suspect]
     Indication: HIV INFECTION
  2. STRIBILD [Suspect]
     Indication: HIV INFECTION
  3. NEVIRAPINE [Concomitant]
     Indication: HIV INFECTION
  4. ETRAVIRINE [Concomitant]
     Indication: HIV INFECTION

REACTIONS (3)
  - Penile curvature [Unknown]
  - Penile size reduced [Unknown]
  - Unevaluable event [Unknown]
